FAERS Safety Report 8073138-8 (Version None)
Quarter: 2012Q1

REPORT INFORMATION
  Report Type: 
  Country: None (occurrence: None)
  Receive Date: 20120123
  Receipt Date: 20120123
  Transmission Date: 20120608
  Serious: Yes (Hospitalization)
  Sender: FDA-Public Use
  Company Number: None

PATIENT
  Sex: Female
  Weight: 105 kg

DRUGS (5)
  1. DOXORUBICIN HCL [Suspect]
     Dosage: 127 MG
     Dates: end: 20111213
  2. CYCLOPHOSPHAMIDE [Suspect]
     Dosage: 1272 MG
     Dates: end: 20111213
  3. TAXOL [Suspect]
     Dosage: 0 MG
     Dates: end: 20111021
  4. CARBOPLATIN [Suspect]
     Dosage: 0 MG
     Dates: end: 20111014
  5. NEULASTA [Suspect]
     Dosage: 6 MG
     Dates: end: 20111215

REACTIONS (4)
  - ANAEMIA [None]
  - HYPOMAGNESAEMIA [None]
  - PLATELET COUNT DECREASED [None]
  - FEBRILE NEUTROPENIA [None]
